FAERS Safety Report 5181111-2 (Version None)
Quarter: 2006Q4

REPORT INFORMATION
  Report Type: 
  Country: None (occurrence: None)
  Receive Date: 20061220
  Receipt Date: 20061212
  Transmission Date: 20070319
  Serious: Yes (Other)
  Sender: FDA-Public Use
  Company Number: CL-ROCHE-474866

PATIENT
  Sex: Female

DRUGS (4)
  1. BONIVA [Suspect]
     Indication: OSTEOPOROSIS
     Route: 048
     Dates: start: 20060915, end: 20061015
  2. ALENDRONATE SODIUM [Concomitant]
     Indication: OSTEOPOROSIS
     Dosage: DRUG REPORTED AS SODIUM ALENDRONATE/LEODRIN.
     Route: 048
     Dates: end: 20060715
  3. ATENOLOL [Concomitant]
     Route: 048
  4. LOVASTATINA [Concomitant]
     Route: 048

REACTIONS (5)
  - ARTHRALGIA [None]
  - ASTHENIA [None]
  - HEPATITIS [None]
  - MYALGIA [None]
  - PYREXIA [None]
